FAERS Safety Report 9124982 (Version 3)
Quarter: 2013Q2

REPORT INFORMATION
  Report Type: Spontaneous
  Country: US (occurrence: US)
  Receive Date: 20130227
  Receipt Date: 20130419
  Transmission Date: 20140414
  Serious: No
  Sender: FDA-Public Use
  Company Number: US-PFIZER INC-2013071142

PATIENT
  Sex: Female

DRUGS (3)
  1. LYRICA [Suspect]
     Dosage: 75 MG, UNK
  2. PROTONIX [Suspect]
     Dosage: 40 MG, UNK
  3. CELEBREX [Suspect]
     Dosage: 200 MG, UNK

REACTIONS (2)
  - Hypersensitivity [Unknown]
  - Pain [Unknown]
